FAERS Safety Report 6971174-3 (Version None)
Quarter: 2010Q3

REPORT INFORMATION
  Report Type: 
  Country: None (occurrence: None)
  Receive Date: 20100824
  Receipt Date: 20100513
  Transmission Date: 20110219
  Serious: No
  Sender: FDA-Public Use
  Company Number: 307629

PATIENT
  Age: 28 Year
  Sex: Female

DRUGS (2)
  1. VICTOZA [Suspect]
     Indication: INSULIN-REQUIRING TYPE 2 DIABETES MELLITUS
     Dosage: 0.6 MG, QD, SUBCUTANEOUS ; SUBCUTANEOUS
     Route: 058
     Dates: start: 20100331
  2. VICTOZA [Suspect]
     Indication: INSULIN-REQUIRING TYPE 2 DIABETES MELLITUS
     Dosage: 0.6 MG, QD, SUBCUTANEOUS ; SUBCUTANEOUS
     Route: 058
     Dates: start: 20100408

REACTIONS (2)
  - PRURITUS GENERALISED [None]
  - RASH MACULAR [None]
